FAERS Safety Report 18194039 (Version 1)
Quarter: 2020Q3

REPORT INFORMATION
  Report Type: Report from Study
  Country: BR (occurrence: BR)
  Receive Date: 20200825
  Receipt Date: 20200825
  Transmission Date: 20201103
  Serious: Yes (Disabling)
  Sender: FDA-Public Use
  Company Number: NVSC2020BR232320

PATIENT
  Sex: Female

DRUGS (1)
  1. DIOVAN [Suspect]
     Active Substance: VALSARTAN
     Indication: PRODUCT USED FOR UNKNOWN INDICATION
     Dosage: 80 MG (MANY YEARS AGO)
     Route: 065

REACTIONS (5)
  - Agitation [Unknown]
  - Deafness [Unknown]
  - Hypoacusis [Unknown]
  - Feeling of despair [Unknown]
  - Fatigue [Unknown]
